FAERS Safety Report 24432656 (Version 2)
Quarter: 2024Q4

REPORT INFORMATION
  Report Type: Spontaneous
  Country: US (occurrence: US)
  Receive Date: 20241014
  Receipt Date: 20241125
  Transmission Date: 20250114
  Serious: No
  Sender: ROCHE
  Company Number: US-ROCHE-10000101688

PATIENT
  Sex: Male
  Weight: 99.79 kg

DRUGS (2)
  1. XOLAIR [Suspect]
     Active Substance: OMALIZUMAB
     Indication: Urticaria
     Dosage: 3 SYRINGES MONTHLY
     Route: 058
  2. XOLAIR [Suspect]
     Active Substance: OMALIZUMAB
     Dosage: 2 SYRINGES MONTHLY
     Route: 058
     Dates: start: 2021

REACTIONS (3)
  - Product use issue [Unknown]
  - Drug ineffective [Unknown]
  - No adverse event [Unknown]
